FAERS Safety Report 9238224 (Version 1)
Quarter: 2013Q1

REPORT INFORMATION
  Report Type: Spontaneous
  Country: US (occurrence: None)
  Receive Date: 20121107
  Receipt Date: 20121107
  Transmission Date: 20140127
  Serious: Yes (Life-Threatening, Hospitalization)
  Sender: FDA-Public Use
  Company Number: E2B_00000377

PATIENT
  Age: 48 Year
  Sex: Female
  Weight: 145.15 kg

DRUGS (14)
  1. LISINOPRIL [Suspect]
     Indication: HYPERTENSION
     Route: 048
     Dates: end: 20120815
  2. ESOMEPRAZOLE (CAPSULES) [Concomitant]
  3. MELOXICAM( TABLETS) [Concomitant]
  4. FEXOFENADINE HCL +PSEUDOEPHEDRINE HCL (ALLEGRA-D) (TABLETS) [Concomitant]
  5. VERAPAMIL (TABLETS) [Concomitant]
  6. METROPROLOL (TABLETS) [Concomitant]
  7. METFORMIN (TABLETS) [Concomitant]
  8. CYCLOBENZAPRINE (TABLETS) [Concomitant]
  9. GEMFIBROZIL (TABLETS) [Concomitant]
  10. HYDROCHLOROTHIAZIDE (TABLETS) [Concomitant]
  11. SIMVASTATIN (TABLETS) [Concomitant]
  12. NORTRIPTYLINE (TABLETS) [Concomitant]
  13. IBUPROFEN (TABLETS) [Concomitant]
  14. SUMITRIPTAN (TABLETS) [Concomitant]

REACTIONS (1)
  - Angioedema [None]
